FAERS Safety Report 10912564 (Version 2)
Quarter: 2015Q2

REPORT INFORMATION
  Report Type: Spontaneous
  Country: GB (occurrence: GB)
  Receive Date: 20150313
  Receipt Date: 20150506
  Transmission Date: 20150821
  Serious: Yes (Death, Other)
  Sender: FDA-Public Use
  Company Number: GB-CELGENE-GBR-2015021382

PATIENT
  Age: 66 Year
  Sex: Male

DRUGS (3)
  1. REVLIMID [Suspect]
     Active Substance: LENALIDOMIDE
     Indication: OFF LABEL USE
     Route: 048
  2. REVLIMID [Suspect]
     Active Substance: LENALIDOMIDE
     Route: 048
     Dates: end: 20141119
  3. REVLIMID [Suspect]
     Active Substance: LENALIDOMIDE
     Indication: ANAPLASTIC LARGE-CELL LYMPHOMA
     Route: 048
     Dates: start: 20140923, end: 20141118

REACTIONS (3)
  - Syncope [Recovered/Resolved with Sequelae]
  - Renal impairment [Fatal]
  - Anaplastic large cell lymphoma T- and null-cell types recurrent [Fatal]

NARRATIVE: CASE EVENT DATE: 20141121
